FAERS Safety Report 4853681-2 (Version None)
Quarter: 2005Q4

REPORT INFORMATION
  Report Type: 
  Country: None (occurrence: None)
  Receive Date: 20051214
  Receipt Date: 20050624
  Transmission Date: 20060501
  Serious: Yes (Other)
  Sender: FDA-Public Use
  Company Number: PHHO2005BR10116

PATIENT
  Age: 41 Year
  Sex: Male
  Weight: 75 kg

DRUGS (8)
  1. CARBOLITIUM [Concomitant]
     Indication: BIPOLAR DISORDER
     Dosage: UNK, UNK
  2. ANAFRANIL [Suspect]
     Indication: BIPOLAR DISORDER
     Dosage: 75MG 3 TABS DAILY
  3. LEPONEX [Suspect]
     Indication: BIPOLAR DISORDER
     Dosage: 100MG 1/2 TAB DAILY
  4. PROPRANOLOL [Concomitant]
     Indication: BIPOLAR DISORDER
     Dosage: 40MG 3 TABS DAILY
  5. OXCARBAZEPINE [Suspect]
     Indication: BIPOLAR DISORDER
     Dosage: 1 TAB AM, 1 TAB PM
     Route: 048
  6. OXCARBAZEPINE [Suspect]
     Dosage: 2 TABS AM, 2 TABS PM
     Route: 048
     Dates: start: 20050613
  7. OXCARBAZEPINE [Suspect]
     Dosage: 3 TABS A DAY
  8. ABILIFY [Concomitant]
     Indication: BIPOLAR DISORDER

REACTIONS (6)
  - BIPOLAR DISORDER [None]
  - CONCOMITANT DISEASE PROGRESSION [None]
  - DIZZINESS [None]
  - DRUG TOXICITY [None]
  - HYPERTENSION [None]
  - VOMITING [None]
